FAERS Safety Report 8174039-7 (Version None)
Quarter: 2012Q1

REPORT INFORMATION
  Report Type: 
  Country: None (occurrence: None)
  Receive Date: 20120227
  Receipt Date: 20120213
  Transmission Date: 20120608
  Serious: Yes (Disabling, Other)
  Sender: FDA-Public Use
  Company Number: 2010MA002410

PATIENT
  Sex: Female
  Weight: 72.5755 kg

DRUGS (25)
  1. MORPHINE [Concomitant]
  2. KETOROLAC TROMETHAMINE [Concomitant]
  3. TOPAMAX [Concomitant]
  4. COMPAZINE [Concomitant]
  5. LUNESTA [Concomitant]
  6. LYRICA [Concomitant]
  7. CELEBREX [Concomitant]
  8. PHENERGAN [Concomitant]
  9. TESSALON [Concomitant]
  10. DESYREL [Concomitant]
  11. METOCLOPRAMIDE HYDROCHLORIDE [Suspect]
     Indication: NAUSEA
     Dosage: PO
     Route: 048
     Dates: start: 20080602, end: 20090221
  12. OXYCODONE HCL AND ACETAMINOPHEN [Concomitant]
  13. FLUOXETINE HCL [Concomitant]
  14. PERCOCET [Concomitant]
  15. MS CONTIN [Concomitant]
  16. PROVIGIL [Concomitant]
  17. CYMBALTA [Concomitant]
  18. IMITREX [Concomitant]
  19. TORADOL [Concomitant]
  20. RESTORIL [Concomitant]
  21. XANAX [Concomitant]
  22. IMIPRAMINE PAMCATE [Concomitant]
  23. METHADON HCL TAB [Concomitant]
  24. BACLOFEN [Concomitant]
  25. RESTORIL [Concomitant]

REACTIONS (40)
  - TARDIVE DYSKINESIA [None]
  - ANXIETY [None]
  - ENCEPHALOPATHY [None]
  - INCOHERENT [None]
  - HEAD TITUBATION [None]
  - CONFUSIONAL STATE [None]
  - FATIGUE [None]
  - PAIN IN EXTREMITY [None]
  - APNOEA [None]
  - HYPOPNOEA [None]
  - EMOTIONAL DISORDER [None]
  - URINARY INCONTINENCE [None]
  - HYPERSOMNIA [None]
  - DRUG INEFFECTIVE [None]
  - METABOLIC ENCEPHALOPATHY [None]
  - ABASIA [None]
  - VICTIM OF SPOUSAL ABUSE [None]
  - PERIORBITAL HAEMATOMA [None]
  - SNORING [None]
  - EXTRAPYRAMIDAL DISORDER [None]
  - PAIN [None]
  - DYSKINESIA [None]
  - AMNESIA [None]
  - SOMNOLENCE [None]
  - INSOMNIA [None]
  - FEELING ABNORMAL [None]
  - AGITATION [None]
  - FALL [None]
  - BACK INJURY [None]
  - LOSS OF CONSCIOUSNESS [None]
  - SLEEP APNOEA SYNDROME [None]
  - ECONOMIC PROBLEM [None]
  - TREMOR [None]
  - MENTAL STATUS CHANGES [None]
  - MEMORY IMPAIRMENT [None]
  - TREATMENT NONCOMPLIANCE [None]
  - BALANCE DISORDER [None]
  - VISION BLURRED [None]
  - DISORIENTATION [None]
  - PITUITARY TUMOUR [None]
